FAERS Safety Report 21898664 (Version 1)
Quarter: 2023Q1

REPORT INFORMATION
  Report Type: Spontaneous
  Country: US (occurrence: None)
  Receive Date: 20230121
  Receipt Date: 20230121
  Transmission Date: 20230418
  Serious: Yes (Hospitalization)
  Sender: FDA-Public Use
  Company Number: None

PATIENT
  Age: 67 Year
  Sex: Male
  Weight: 115 kg

DRUGS (12)
  1. WARFARIN [Suspect]
     Active Substance: WARFARIN
     Indication: Atrial fibrillation
     Dosage: OTHER FREQUENCY : DAILY, 2MG T/TH/SA;?
     Route: 048
     Dates: start: 20210630
  2. WARFARIN [Suspect]
     Active Substance: WARFARIN
     Indication: Mitral valve replacement
  3. PRAVASTATIN [Concomitant]
     Active Substance: PRAVASTATIN
  4. TAMSULOSIN [Concomitant]
     Active Substance: TAMSULOSIN
  5. SOLIFENACIN [Concomitant]
     Active Substance: SOLIFENACIN
  6. MIRABEGRON [Concomitant]
     Active Substance: MIRABEGRON
  7. METFORMIN [Concomitant]
     Active Substance: METFORMIN HYDROCHLORIDE
  8. OXYBUTYNIN [Concomitant]
     Active Substance: OXYBUTYNIN
  9. GABAPENTIN [Concomitant]
     Active Substance: GABAPENTIN
  10. FLUTICASONE PROPIONATE [Concomitant]
     Active Substance: FLUTICASONE PROPIONATE
  11. METOPROLOL TARTRATE [Concomitant]
     Active Substance: METOPROLOL TARTRATE
  12. TIOTROPIUM BROMIDE [Concomitant]
     Active Substance: TIOTROPIUM BROMIDE

REACTIONS (2)
  - Anticoagulation drug level below therapeutic [None]
  - Large intestinal haemorrhage [None]

NARRATIVE: CASE EVENT DATE: 20230112
